FAERS Safety Report 6039744-7 (Version None)
Quarter: 2009Q1

REPORT INFORMATION
  Report Type: 
  Country: None (occurrence: None)
  Receive Date: 20090116
  Receipt Date: 20090115
  Transmission Date: 20090719
  Serious: Yes (Life-Threatening, Hospitalization)
  Sender: FDA-Public Use
  Company Number: FR-ASTRAZENECA-2009CG00157

PATIENT
  Age: 28826 Day
  Sex: Male

DRUGS (10)
  1. DIPRIVAN [Suspect]
     Indication: ANAESTHESIA
     Route: 042
     Dates: start: 20081202, end: 20081202
  2. DIPRIVAN [Suspect]
     Indication: OESOPHAGEAL STENT INSERTION
     Route: 042
     Dates: start: 20081202, end: 20081202
  3. MIDAZOLAM HCL [Concomitant]
     Dates: start: 20081202, end: 20081202
  4. AUGMENTIN '125' [Concomitant]
     Dates: start: 20081202, end: 20081202
  5. PERFALGAN [Concomitant]
     Dates: start: 20081202, end: 20081202
  6. SPASFON [Concomitant]
     Dates: start: 20081202, end: 20081202
  7. CORDARONE [Concomitant]
     Dates: start: 20081202, end: 20081202
  8. LOVENOX [Concomitant]
     Dates: start: 20081202, end: 20081202
  9. FLECAINE [Concomitant]
     Indication: ATRIAL FLUTTER
  10. DETENSIEL [Concomitant]
     Indication: HYPERTENSION

REACTIONS (1)
  - HAEMOLYSIS [None]
